FAERS Safety Report 18452451 (Version 6)
Quarter: 2021Q1

REPORT INFORMATION
  Report Type: Report from Study
  Country: US (occurrence: US)
  Receive Date: 20201102
  Receipt Date: 20210127
  Transmission Date: 20210419
  Serious: Yes (Other)
  Sender: FDA-Public Use
  Company Number: US-BIOVITRUM-2020US5229

PATIENT
  Age: 8 Year
  Sex: Female

DRUGS (3)
  1. KINERET [Suspect]
     Active Substance: ANAKINRA
     Indication: JUVENILE IDIOPATHIC ARTHRITIS
     Route: 058
     Dates: start: 20200105
  2. KINERET [Suspect]
     Active Substance: ANAKINRA
     Indication: JUVENILE IDIOPATHIC ARTHRITIS
     Route: 058
     Dates: start: 20201009
  3. PREDNISONE. [Concomitant]
     Active Substance: PREDNISONE

REACTIONS (21)
  - Symptom recurrence [Unknown]
  - Vomiting [Unknown]
  - Joint stiffness [Unknown]
  - Serum ferritin increased [Unknown]
  - Iron deficiency [Unknown]
  - Hypochloraemia [Unknown]
  - Microcytosis [Unknown]
  - C-reactive protein increased [Unknown]
  - Injection site pain [Unknown]
  - Pyrexia [Unknown]
  - Red blood cell sedimentation rate increased [Unknown]
  - Injection site bruising [Unknown]
  - Nausea [Unknown]
  - Abdominal pain [Unknown]
  - Pain [Unknown]
  - Joint swelling [Unknown]
  - Hypochromasia [Unknown]
  - Off label use [Not Recovered/Not Resolved]
  - Juvenile idiopathic arthritis [Unknown]
  - Injection site erythema [Unknown]
  - Product dose omission issue [Unknown]

NARRATIVE: CASE EVENT DATE: 20200105
